FAERS Safety Report 15754426 (Version 2)
Quarter: 2018Q4

REPORT INFORMATION
  Report Type: Report from Study
  Country: IE (occurrence: IE)
  Receive Date: 20181224
  Receipt Date: 20181231
  Transmission Date: 20190205
  Serious: Yes (Other)
  Sender: FDA-Public Use
  Company Number: IE-AMGEN-IRLCT2018182864

PATIENT
  Age: 64 Year
  Sex: Female
  Weight: 55 kg

DRUGS (4)
  1. ETANERCEPT [Suspect]
     Active Substance: ETANERCEPT
     Dosage: UNK
     Route: 065
  2. METHOTREXATE SODIUM. [Suspect]
     Active Substance: METHOTREXATE SODIUM
     Indication: PRODUCT USED FOR UNKNOWN INDICATION
     Dosage: UNK
     Route: 065
  3. ETANERCEPT [Suspect]
     Active Substance: ETANERCEPT
     Indication: PRODUCT USED FOR UNKNOWN INDICATION
     Dosage: UNK
     Route: 065
  4. HUMIRA [Suspect]
     Active Substance: ADALIMUMAB
     Indication: RHEUMATOID ARTHRITIS
     Dosage: 40 MG, EVERY 2 WEEKS
     Route: 058
     Dates: start: 20160831, end: 20170301

REACTIONS (5)
  - White blood cell count abnormal [Unknown]
  - Myelodysplastic syndrome [Unknown]
  - Blood disorder [Unknown]
  - Drug effect incomplete [Not Recovered/Not Resolved]
  - Platelet count decreased [Unknown]
